FAERS Safety Report 22141653 (Version 3)
Quarter: 2024Q1

REPORT INFORMATION
  Report Type: Spontaneous
  Country: US (occurrence: US)
  Receive Date: 20230327
  Receipt Date: 20240208
  Transmission Date: 20240409
  Serious: No
  Sender: FDA-Public Use
  Company Number: US-PFIZER INC-202300127797

PATIENT
  Age: 64 Year
  Sex: Female
  Weight: 100.24 kg

DRUGS (2)
  1. MISOPROSTOL [Suspect]
     Active Substance: MISOPROSTOL
     Indication: Arthralgia
     Dosage: UNK
  2. DICLOFENAC SODIUM [Suspect]
     Active Substance: DICLOFENAC\DICLOFENAC SODIUM
     Indication: Arthralgia
     Dosage: UNK

REACTIONS (6)
  - Abdominal discomfort [Unknown]
  - Oesophageal pain [Unknown]
  - Epigastric discomfort [Unknown]
  - Oropharyngeal discomfort [Unknown]
  - Off label use [Unknown]
  - Gastrointestinal disorder [Unknown]
